FAERS Safety Report 7208287-7 (Version None)
Quarter: 2011Q1

REPORT INFORMATION
  Report Type: 
  Country: None (occurrence: None)
  Receive Date: 20110104
  Receipt Date: 20101227
  Transmission Date: 20110831
  Serious: Yes (Hospitalization, Other)
  Sender: FDA-Public Use
  Company Number: FR-PFIZER INC-2010179342

PATIENT
  Age: 66 Year
  Sex: Female
  Weight: 49 kg

DRUGS (19)
  1. IDEOS [Concomitant]
     Dosage: UNK
  2. LEXOMIL [Concomitant]
     Dosage: UNK
  3. GEMCITABINE [Concomitant]
     Indication: ADENOCARCINOMA
     Dosage: UNK
     Dates: start: 20101019
  4. LEVOTHYROX [Concomitant]
     Dosage: UNK
  5. EMEND [Interacting]
     Dosage: UNK
     Route: 048
     Dates: start: 20101019, end: 20101119
  6. BONIVA [Concomitant]
     Dosage: 150 MG, MONTHLY
  7. POLARAMINE [Concomitant]
     Indication: RESPIRATORY DISORDER
     Dosage: UNK
     Dates: start: 20101102
  8. TAHOR [Suspect]
     Dosage: 40 MG, 1X/DAY
     Route: 048
     Dates: end: 20101119
  9. SYMBICORT [Concomitant]
     Dosage: UNK
  10. SERESTA [Concomitant]
     Dosage: UNK
  11. DOLIPRANE [Concomitant]
     Indication: PAIN
     Dosage: UNK
  12. OXALIPLATIN [Concomitant]
     Indication: ADENOCARCINOMA
     Dosage: UNK
     Dates: start: 20101019
  13. ZOPHREN [Concomitant]
     Indication: ANTIEMETIC SUPPORTIVE CARE
     Dosage: UNK
     Dates: start: 20101019
  14. SPIRIVA [Concomitant]
  15. BIPERIDYS [Concomitant]
     Dosage: UNK
     Dates: end: 20101116
  16. OROPERIDYS [Concomitant]
     Dosage: UNK
     Dates: end: 20101116
  17. HAVLANE [Concomitant]
     Dosage: UNK
  18. PRIMPERAN TAB [Concomitant]
     Dosage: UNK
     Dates: end: 20101116
  19. SOLU-MEDROL [Concomitant]
     Indication: RESPIRATORY DISORDER
     Dosage: UNK
     Dates: start: 20101102

REACTIONS (8)
  - ALANINE AMINOTRANSFERASE INCREASED [None]
  - GAMMA-GLUTAMYLTRANSFERASE INCREASED [None]
  - RESPIRATORY DISORDER [None]
  - PARAESTHESIA [None]
  - RHABDOMYOLYSIS [None]
  - BLOOD LACTATE DEHYDROGENASE INCREASED [None]
  - DRUG INTERACTION [None]
  - ASPARTATE AMINOTRANSFERASE INCREASED [None]
